FAERS Safety Report 4974706-X (Version None)
Quarter: 2006Q2

REPORT INFORMATION
  Report Type: 
  Country: None (occurrence: None)
  Receive Date: 20060410
  Receipt Date: 20060327
  Transmission Date: 20061013
  Serious: Yes (Hospitalization)
  Sender: FDA-Public Use
  Company Number: PAR_0576_2006

PATIENT
  Age: 38 Year
  Sex: Female

DRUGS (5)
  1. CLOZAPINE [Suspect]
     Indication: PSYCHOTIC DISORDER
     Dosage: 350 MG QDAY; UNK
     Dates: start: 19960101, end: 20041201
  2. CLOZAPINE [Suspect]
     Indication: PSYCHOTIC DISORDER
     Dosage: VAR QDAY;
     Dates: start: 19960101
  3. VALPROATE SODIUM [Concomitant]
  4. BENZHEXOL [Concomitant]
  5. LORAZEPAM [Concomitant]

REACTIONS (14)
  - ABDOMINAL DISTENSION [None]
  - ABNORMAL BEHAVIOUR [None]
  - AGGRESSION [None]
  - COLITIS PSEUDOMEMBRANOUS [None]
  - ELECTROENCEPHALOGRAM ABNORMAL [None]
  - FREQUENT BOWEL MOVEMENTS [None]
  - GASTROINTESTINAL EROSION [None]
  - GASTROINTESTINAL NECROSIS [None]
  - GRAND MAL CONVULSION [None]
  - HYPOTENSION [None]
  - POOR PERSONAL HYGIENE [None]
  - POSTOPERATIVE ILEUS [None]
  - SOCIAL AVOIDANT BEHAVIOUR [None]
  - SPEECH DISORDER [None]
